FAERS Safety Report 9397935 (Version 3)
Quarter: 2013Q3

REPORT INFORMATION
  Report Type: Spontaneous
  Country: DE (occurrence: DE)
  Receive Date: 20130712
  Receipt Date: 20130906
  Transmission Date: 20140515
  Serious: Yes (Other)
  Sender: FDA-Public Use
  Company Number: DE-JNJFOC-20130706609

PATIENT
  Age: 74 Year
  Sex: Female

DRUGS (7)
  1. XARELTO [Suspect]
     Indication: THROMBOSIS PROPHYLAXIS
     Route: 048
  2. XARELTO [Suspect]
     Indication: THROMBOSIS PROPHYLAXIS
     Route: 048
     Dates: start: 20130612, end: 20130702
  3. XARELTO [Suspect]
     Indication: KNEE ARTHROPLASTY
     Route: 048
     Dates: start: 20130612, end: 20130702
  4. XARELTO [Suspect]
     Indication: KNEE ARTHROPLASTY
     Route: 048
  5. KINZALMONO [Concomitant]
     Indication: PRODUCT USED FOR UNKNOWN INDICATION
     Route: 065
  6. PREDNISOLON [Concomitant]
     Indication: PRODUCT USED FOR UNKNOWN INDICATION
     Route: 065
  7. NOVAMIN [Concomitant]
     Indication: KNEE ARTHROPLASTY
     Route: 065

REACTIONS (2)
  - Thrombosis [Unknown]
  - Drug ineffective [Unknown]
